FAERS Safety Report 7292808-2 (Version None)
Quarter: 2011Q1

REPORT INFORMATION
  Report Type: 
  Country: None (occurrence: None)
  Receive Date: 20110215
  Receipt Date: 20110202
  Transmission Date: 20110831
  Serious: Yes (Hospitalization)
  Sender: FDA-Public Use
  Company Number: US-ELI_LILLY_AND_COMPANY-US201012005444

PATIENT
  Sex: Female

DRUGS (8)
  1. LEXAPRO [Concomitant]
     Dosage: 10 MG, DAILY (1/D)
     Route: 065
  2. CIMZIA [Concomitant]
     Dosage: UNK, ONCE A MONTH
     Route: 065
  3. FORTEO [Suspect]
     Indication: OSTEOPOROSIS
     Dosage: 20 UG, DAILY (1/D)
     Route: 058
     Dates: start: 20101119, end: 20101201
  4. FORTEO [Suspect]
     Dates: start: 20110107
  5. ADVAIR [Concomitant]
     Indication: HYPERSENSITIVITY
     Dosage: UNK, DAILY (1/D)
     Route: 065
  6. PROTONIX [Concomitant]
     Dosage: 40 MG, DAILY (1/D)
     Route: 065
  7. MULTIVITAMIN [Concomitant]
     Dosage: UNK, DAILY (1/D)
     Route: 065
  8. FORTEO [Suspect]
     Dosage: 20 UG, DAILY (1/D)
     Dates: start: 20101209

REACTIONS (2)
  - CLOSTRIDIAL INFECTION [None]
  - DEVICE MISUSE [None]
